FAERS Safety Report 4592985-8 (Version None)
Quarter: 2005Q1

REPORT INFORMATION
  Report Type: 
  Country: None (occurrence: None)
  Receive Date: 20050228
  Receipt Date: 20050222
  Transmission Date: 20050727
  Serious: Yes (Other)
  Sender: FDA-Public Use
  Company Number: US-BRISTOL-MYERS SQUIBB COMPANY-12872263

PATIENT
  Age: 54 Year
  Sex: Female
  Weight: 54 kg

DRUGS (5)
  1. ESTRACE [Suspect]
     Indication: MENOPAUSE
     Dates: start: 19900101, end: 20020101
  2. ESTRADIOL [Suspect]
     Indication: MENOPAUSE
     Dates: start: 19900101, end: 20020101
  3. PREMARIN [Suspect]
     Indication: MENOPAUSE
     Dates: start: 19820101, end: 19990101
  4. OGEN [Suspect]
     Indication: MENOPAUSE
     Dates: start: 19820101, end: 19820101
  5. PROVERA [Suspect]
     Indication: MENOPAUSE
     Dates: start: 19870101, end: 20020101

REACTIONS (1)
  - BREAST CANCER [None]
